FAERS Safety Report 12387212 (Version 1)
Quarter: 2016Q2

REPORT INFORMATION
  Report Type: Report from Study
  Country: US (occurrence: US)
  Receive Date: 20160519
  Receipt Date: 20160519
  Transmission Date: 20160815
  Serious: Yes (Hospitalization, Other)
  Sender: FDA-Public Use
  Company Number: US-ACTELION-A-NJ2016-136268

PATIENT
  Age: 72 Year
  Sex: Female

DRUGS (10)
  1. TRACLEER [Suspect]
     Active Substance: BOSENTAN
     Indication: PULMONARY ARTERIAL HYPERTENSION
     Dosage: 125 MG, BID
     Route: 048
     Dates: start: 20020205
  2. XANAX [Concomitant]
     Active Substance: ALPRAZOLAM
  3. ALLOPURINOL. [Concomitant]
     Active Substance: ALLOPURINOL
  4. INSULIN [Concomitant]
     Active Substance: INSULIN NOS
  5. DEMADEX [Concomitant]
     Active Substance: TORSEMIDE
  6. ZANAFLEX [Concomitant]
     Active Substance: TIZANIDINE HYDROCHLORIDE
  7. CRESTOR [Concomitant]
     Active Substance: ROSUVASTATIN CALCIUM
  8. TRAMADOL. [Concomitant]
     Active Substance: TRAMADOL
  9. OXYGEN. [Concomitant]
     Active Substance: OXYGEN
  10. K-DUR [Concomitant]
     Active Substance: POTASSIUM CHLORIDE

REACTIONS (7)
  - Transfusion [Recovering/Resolving]
  - Malaise [Not Recovered/Not Resolved]
  - Asthenia [Not Recovered/Not Resolved]
  - Haemoglobin decreased [Recovering/Resolving]
  - Knee arthroplasty [Recovered/Resolved]
  - Portal hypertensive gastropathy [Unknown]
  - Dyspnoea [Not Recovered/Not Resolved]

NARRATIVE: CASE EVENT DATE: 20160314
